FAERS Safety Report 4710679-2 (Version None)
Quarter: 2005Q3

REPORT INFORMATION
  Report Type: 
  Country: None (occurrence: None)
  Receive Date: 20050707
  Receipt Date: 20041129
  Transmission Date: 20060218
  Serious: Yes (Other)
  Sender: FDA-Public Use
  Company Number: 2004-0007802

PATIENT
  Age: 43 Year
  Sex: Male

DRUGS (3)
  1. EMTRIVA [Suspect]
  2. VIREAD [Suspect]
  3. EFAVIRENZ [Suspect]

REACTIONS (1)
  - PSORIASIS [None]
